FAERS Safety Report 16150507 (Version 10)
Quarter: 2019Q2

REPORT INFORMATION
  Report Type: Report from Study
  Country: US (occurrence: US)
  Receive Date: 20190402
  Receipt Date: 20190624
  Transmission Date: 20190711
  Serious: Yes (Hospitalization)
  Sender: FDA-Public Use
  Company Number: US-ACTELION-A-US2019-188456

PATIENT
  Age: 55 Year
  Sex: Female
  Weight: 51.7 kg

DRUGS (6)
  1. DIGOXIN. [Concomitant]
     Active Substance: DIGOXIN
  2. SILDENAFIL. [Concomitant]
     Active Substance: SILDENAFIL
  3. VELETRI [Suspect]
     Active Substance: EPOPROSTENOL
     Indication: PULMONARY HYPERTENSION
     Dosage: 4 NG/KG, PER MIN
     Route: 042
  4. OPSUMIT [Suspect]
     Active Substance: MACITENTAN
     Indication: PULMONARY HYPERTENSION
     Dosage: UNK
     Route: 048
     Dates: start: 20190311
  5. VELETRI [Suspect]
     Active Substance: EPOPROSTENOL
     Dosage: 5.15 NG/KG, PER MIN
     Route: 042
  6. VELETRI [Suspect]
     Active Substance: EPOPROSTENOL
     Dosage: 5.8 NG/KG, PER MIN
     Route: 042

REACTIONS (18)
  - Headache [Unknown]
  - Palpitations [Recovering/Resolving]
  - Eye pain [Unknown]
  - Nausea [Unknown]
  - Nasal congestion [Unknown]
  - Seasonal allergy [Unknown]
  - Dyspnoea [Unknown]
  - Feeling abnormal [Unknown]
  - Vision blurred [Unknown]
  - Pulse abnormal [Recovering/Resolving]
  - Pain in jaw [Unknown]
  - Catheter site bruise [Unknown]
  - Catheter site erythema [Unknown]
  - Crying [Unknown]
  - Tachycardia [Not Recovered/Not Resolved]
  - Oedema peripheral [Unknown]
  - Catheter site pruritus [Unknown]
  - Hypersensitivity [Unknown]

NARRATIVE: CASE EVENT DATE: 201904
